FAERS Safety Report 13515179 (Version 8)
Quarter: 2017Q3

REPORT INFORMATION
  Report Type: Spontaneous
  Country: US (occurrence: US)
  Receive Date: 20170504
  Receipt Date: 20170727
  Transmission Date: 20171127
  Serious: Yes (Death, Life-Threatening, Hospitalization, Other)
  Sender: FDA-Public Use
  Company Number: US-ALEXION PHARMACEUTICALS INC.-A201704617

PATIENT
  Age: 41 Year
  Sex: Female

DRUGS (3)
  1. SOLIRIS [Suspect]
     Active Substance: ECULIZUMAB
     Dosage: 1500 MG, EVERY 10 DAYS
     Route: 042
  2. SOLIRIS [Suspect]
     Active Substance: ECULIZUMAB
     Dosage: 1200 MG, EVERY 10 DAYS
     Route: 042
  3. SOLIRIS [Suspect]
     Active Substance: ECULIZUMAB
     Indication: HAEMOLYTIC URAEMIC SYNDROME
     Dosage: 1200 MG, UNK
     Route: 042

REACTIONS (20)
  - Respiratory distress [Fatal]
  - Thrombotic microangiopathy [Unknown]
  - Haemoptysis [Unknown]
  - Pneumonia [Unknown]
  - Haemoglobin decreased [Unknown]
  - Blood bilirubin increased [Unknown]
  - Migraine [Unknown]
  - Pulmonary oedema [Unknown]
  - Blood urine present [Unknown]
  - Inappropriate schedule of drug administration [Unknown]
  - Fatigue [Not Recovered/Not Resolved]
  - Blood creatinine increased [Unknown]
  - Haemorrhage [Unknown]
  - Blood lactate dehydrogenase increased [Unknown]
  - Incorrect dose administered [Not Recovered/Not Resolved]
  - Drug ineffective [Unknown]
  - Mental status changes [Unknown]
  - Diffuse alveolar damage [Unknown]
  - Renal impairment [Unknown]
  - Kidney transplant rejection [Unknown]

NARRATIVE: CASE EVENT DATE: 20170420
